FAERS Safety Report 7537215-X (Version None)
Quarter: 2011Q2

REPORT INFORMATION
  Report Type: 
  Country: None (occurrence: None)
  Receive Date: 20110609
  Receipt Date: 20110518
  Transmission Date: 20111010
  Serious: Yes (Other)
  Sender: FDA-Public Use
  Company Number: BR-PFIZER INC-2011106868

PATIENT
  Age: 68 Year
  Sex: Female

DRUGS (1)
  1. XALATAN [Suspect]
     Indication: GLAUCOMA
     Dosage: 2 DROPS (3 UG), 1X/DAY
     Route: 047
     Dates: start: 20020518

REACTIONS (4)
  - HYPERSENSITIVITY [None]
  - BLISTER [None]
  - OCULAR HYPERAEMIA [None]
  - EYE IRRITATION [None]
